FAERS Safety Report 4628016-0 (Version None)
Quarter: 2005Q2

REPORT INFORMATION
  Report Type: 
  Country: None (occurrence: None)
  Receive Date: 20050401
  Receipt Date: 20050323
  Transmission Date: 20051028
  Serious: Yes (Hospitalization)
  Sender: FDA-Public Use
  Company Number: GXKR2005SE00826

PATIENT
  Age: 61 Year
  Sex: Female

DRUGS (4)
  1. TRAMADOL (NGX)(TRAMADOL) UNKNOWN, 50MG [Suspect]
     Indication: SCIATICA
     Dosage: 50 MG, DAILY
  2. ENALAPRIL MALEATE [Suspect]
     Indication: SCIATICA
  3. DILTIAZEM [Concomitant]
  4. BUDESONIDE [Concomitant]

REACTIONS (4)
  - ANGIONEUROTIC OEDEMA [None]
  - DRUG INTERACTION [None]
  - RESPIRATORY DISTRESS [None]
  - SWOLLEN TONGUE [None]
